FAERS Safety Report 21817297 (Version 2)
Quarter: 2023Q1

REPORT INFORMATION
  Report Type: Spontaneous
  Country: IQ (occurrence: IQ)
  Receive Date: 20230104
  Receipt Date: 20230217
  Transmission Date: 20230417
  Serious: Yes (Death)
  Sender: FDA-Public Use
  Company Number: IQ-BAYER-2023P000175

PATIENT
  Age: 46 Year
  Sex: Male

DRUGS (1)
  1. NEXAVAR [Suspect]
     Active Substance: SORAFENIB
     Indication: Thyroid cancer
     Dosage: 400 MG, BID
     Dates: start: 202203, end: 20221220

REACTIONS (5)
  - Thyroid cancer [Fatal]
  - Asthenia [Recovering/Resolving]
  - Yellow skin [Recovering/Resolving]
  - Decreased appetite [Recovering/Resolving]
  - Hyperthermia [Recovering/Resolving]
